FAERS Safety Report 6738818-2 (Version None)
Quarter: 2010Q2

REPORT INFORMATION
  Report Type: 
  Country: None (occurrence: None)
  Receive Date: 20100520
  Receipt Date: 20100430
  Transmission Date: 20101027
  Serious: Yes (Other)
  Sender: FDA-Public Use
  Company Number: 011836

PATIENT
  Sex: Male

DRUGS (17)
  1. OMEPRAZOLE [Suspect]
     Dosage: 40 ORAL
     Route: 048
  2. PHENERGAN HCL [Suspect]
     Indication: NAUSEA
     Dosage: ORAL
     Route: 048
  3. SIMVASTATIN [Suspect]
     Dosage: 80 MG ORAL
     Route: 048
  4. CARVEDILOL [Suspect]
     Dosage: 25 MG BID ORAL
     Route: 048
  5. RANITIDINE [Suspect]
     Indication: PROPHYLAXIS
     Dosage: INTRAVENOUS (NOT OTHERWISE SPECIFIED)
     Route: 042
  6. ZOFRAN [Suspect]
     Indication: PROPHYLAXIS OF NAUSEA AND VOMITING
     Dosage: INTRAVENOUS (NOT OTHERWISE SPECIFIED)
     Route: 042
  7. ASPIRIN [Suspect]
     Dosage: 81 MG ORAL
     Route: 048
  8. CARBOPLATIN [Suspect]
     Indication: CHEMOTHERAPY
     Dosage: INTRAVENOUS (NOT OTHERWISE SPECIFIED)
     Route: 042
     Dates: start: 20100414
  9. DETROL [Suspect]
     Dosage: 4 MG ORAL
     Route: 048
  10. DEXAMETHASONE [Suspect]
     Indication: PROPHYLAXIS OF NAUSEA AND VOMITING
     Dosage: INTRAVENOUS (NOT OTHERWISE SPECIFIED)
     Route: 042
  11. FOSINOPRIL SODIUM [Suspect]
     Dosage: 40 MG ORAL
     Route: 048
  12. MEGACE [Suspect]
     Indication: INCREASED APPETITE
     Dosage: 160 MG/ML ORAL
     Route: 048
  13. DIPHENHYDRAMINE HYDROCHLORIDE [Suspect]
     Indication: PROPHYLAXIS
     Dosage: INTRAVENOUS (NOT OTHERWISE SPECIFIED)
     Route: 042
  14. TAXOL [Suspect]
     Indication: CHEMOTHERAPY
     Dosage: INTRAVENOUS (NOT OTHERWISE SPECIFIED)
     Route: 042
     Dates: start: 20100414
  15. PLAVIX [Suspect]
     Dosage: 75 MG ORAL
     Route: 048
  16. VITAMINE D VOOR SENIOREN (NOT SPECIFIED) [Suspect]
     Indication: PROPHYLAXIS OF NAUSEA AND VOMITING
  17. HYDROCHLOROTHIAZIDE [Suspect]
     Dosage: 12.5 MG ORAL
     Route: 048

REACTIONS (24)
  - ASTHENIA [None]
  - ATELECTASIS [None]
  - BLOOD CALCIUM DECREASED [None]
  - BLOOD CHLORIDE DECREASED [None]
  - BLOOD GLUCOSE INCREASED [None]
  - BLOOD MAGNESIUM DECREASED [None]
  - BLOOD POTASSIUM DECREASED [None]
  - BLOOD SODIUM INCREASED [None]
  - BLOOD UREA INCREASED [None]
  - BODY TEMPERATURE DECREASED [None]
  - CACHEXIA [None]
  - DECREASED APPETITE [None]
  - FAILURE TO THRIVE [None]
  - HAEMATOCRIT DECREASED [None]
  - HAEMOGLOBIN DECREASED [None]
  - HYPOPHAGIA [None]
  - LISTLESS [None]
  - MOVEMENT DISORDER [None]
  - PNEUMONIA [None]
  - PROTHROMBIN TIME PROLONGED [None]
  - RED BLOOD CELL COUNT DECREASED [None]
  - RED BLOOD CELL MICROCYTES PRESENT [None]
  - TACHYCARDIA [None]
  - WHITE BLOOD CELL COUNT DECREASED [None]
